FAERS Safety Report 6619353-9 (Version None)
Quarter: 2010Q1

REPORT INFORMATION
  Report Type: 
  Country: None (occurrence: None)
  Receive Date: 20100308
  Receipt Date: 20090323
  Transmission Date: 20100710
  Serious: No
  Sender: FDA-Public Use
  Company Number: US-TYCO HEALTHCARE/MALLINCKRODT-T200900732

PATIENT
  Sex: Male
  Weight: 71.655 kg

DRUGS (8)
  1. TEMAZEPAM [Suspect]
     Indication: SLEEP DISORDER
     Dosage: UNK
     Dates: start: 20080101, end: 20081101
  2. CHANTIX [Suspect]
     Indication: SMOKING CESSATION THERAPY
     Dosage: 0.5 MG, QD
     Dates: start: 20080401, end: 20080601
  3. CHANTIX [Suspect]
     Dosage: UNK
     Dates: start: 20080701, end: 20080701
  4. CHANTIX [Suspect]
     Dosage: UNK
     Dates: start: 20081101
  5. CALCIUM WITH VITAMIN D             /00944201/ [Concomitant]
     Indication: OSTEOPOROSIS
  6. SYNTHROID [Concomitant]
     Indication: THYROID DISORDER
  7. VENLAFAXINE [Concomitant]
     Indication: DEPRESSION
  8. TESTOSTERONE [Concomitant]

REACTIONS (2)
  - FEELING ABNORMAL [None]
  - HALLUCINATION, AUDITORY [None]
